FAERS Safety Report 5847798-3 (Version None)
Quarter: 2008Q3

REPORT INFORMATION
  Report Type: 
  Country: None (occurrence: None)
  Receive Date: 20080815
  Receipt Date: 20080815
  Transmission Date: 20090109
  Serious: Yes (Hospitalization)
  Sender: FDA-Public Use
  Company Number: None

PATIENT
  Sex: Female
  Weight: 14.3 kg

DRUGS (1)
  1. PREDNISONE TAB [Suspect]
     Dosage: 210 MG

REACTIONS (15)
  - ADENOVIRUS INFECTION [None]
  - CULTURE THROAT POSITIVE [None]
  - FEBRILE NEUTROPENIA [None]
  - GASTROINTESTINAL HAEMORRHAGE [None]
  - GENERAL PHYSICAL HEALTH DETERIORATION [None]
  - MALAISE [None]
  - MUCOSAL INFLAMMATION [None]
  - MYDRIASIS [None]
  - NEUROLOGICAL SYMPTOM [None]
  - OXYGEN SATURATION DECREASED [None]
  - POOR PERIPHERAL CIRCULATION [None]
  - RESPIRATORY DISORDER [None]
  - RESPIRATORY FAILURE [None]
  - STEM CELL TRANSPLANT [None]
  - UPPER AIRWAY OBSTRUCTION [None]
